FAERS Safety Report 9188441 (Version 1)
Quarter: 2012Q4

REPORT INFORMATION
  Report Type: 
  Country: ES (occurrence: ES)
  Receive Date: 20121205
  Receipt Date: 20121205
  Transmission Date: 20130627
  Serious: Yes (Other)
  Sender: FDA-Public Use
  Company Number: PHHY2012ES110163

PATIENT
  Age: 50 Year
  Sex: Female

DRUGS (1)
  1. ZOMETA [Suspect]
     Dosage: 4 mg, 21 doses for 3 years
     Route: 042

REACTIONS (12)
  - Osteonecrosis of jaw [Recovered/Resolved]
  - Exposed bone in jaw [Recovering/Resolving]
  - Gingival ulceration [Recovered/Resolved]
  - Gingival infection [Unknown]
  - Mastication disorder [Recovering/Resolving]
  - Pain in jaw [Recovering/Resolving]
  - Breath odour [Unknown]
  - Dyskinesia [Recovering/Resolving]
  - Paraesthesia oral [Recovered/Resolved]
  - Mucosal ulceration [Recovered/Resolved]
  - Oral mucosal erythema [Recovered/Resolved]
  - Primary sequestrum [Unknown]
